FAERS Safety Report 16866692 (Version 1)
Quarter: 2019Q3

REPORT INFORMATION
  Report Type: Spontaneous
  Country: CA (occurrence: CA)
  Receive Date: 20190930
  Receipt Date: 20190930
  Transmission Date: 20191005
  Serious: Yes (Other)
  Sender: FDA-Public Use
  Company Number: PHHY2019CA226052

PATIENT
  Age: 48 Year
  Sex: Female

DRUGS (6)
  1. CEFPROZIL SANDOZ [Suspect]
     Active Substance: CEFPROZIL
     Indication: PRODUCT USED FOR UNKNOWN INDICATION
     Dosage: 1 DF, BID
     Route: 065
  2. GLYBURIDE. [Concomitant]
     Active Substance: GLYBURIDE
     Indication: DIABETES MELLITUS
     Route: 065
  3. NUCALA [Suspect]
     Active Substance: MEPOLIZUMAB
     Indication: ASTHMA
     Dosage: 100 MG, UNK
     Route: 065
  4. PREDNISONE. [Suspect]
     Active Substance: PREDNISONE
     Indication: PRODUCT USED FOR UNKNOWN INDICATION
     Route: 065
  5. JANUVIA [Concomitant]
     Active Substance: SITAGLIPTIN PHOSPHATE
     Indication: DIABETES MELLITUS
     Route: 065
  6. SALBUTAMOL SULFATE [Suspect]
     Active Substance: ALBUTEROL SULFATE
     Indication: PRODUCT USED FOR UNKNOWN INDICATION
     Route: 065

REACTIONS (9)
  - Infection [Recovered/Resolved]
  - Nasal congestion [Recovered/Resolved]
  - Nasal polyps [Recovered/Resolved]
  - Sinusitis [Recovered/Resolved]
  - Chronic sinusitis [Recovered/Resolved]
  - Diabetes mellitus [Recovered/Resolved]
  - Multiple allergies [Recovered/Resolved]
  - Type 2 diabetes mellitus [Recovered/Resolved]
  - Sinonasal obstruction [Recovered/Resolved]
